APPROVED DRUG PRODUCT: ATRACURIUM BESYLATE
Active Ingredient: ATRACURIUM BESYLATE
Strength: 10MG/ML
Dosage Form/Route: INJECTABLE;INJECTION
Application: A074945 | Product #001
Applicant: WATSON PHARMACEUTICALS INC AN INDIRECT WHOLLY OWNED SUB OF TEVA PHARMACEUTICALS USA INC
Approved: Jul 28, 1998 | RLD: No | RS: No | Type: DISCN